FAERS Safety Report 9715660 (Version 4)
Quarter: 2014Q1

REPORT INFORMATION
  Report Type: Report from Study
  Country: DE (occurrence: DE)
  Receive Date: 20131127
  Receipt Date: 20140227
  Transmission Date: 20141002
  Serious: Yes (Death, Life-Threatening, Hospitalization, Other)
  Sender: FDA-Public Use
  Company Number: DE-ROCHE-1212967

PATIENT
  Age: 71 Year
  Sex: Male

DRUGS (6)
  1. BEVACIZUMAB [Suspect]
     Indication: NON-SMALL CELL LUNG CANCER
     Dosage: 7.5 MG/KG, LAST DOSE PRIOR TO SAE 24/JUL/2013
     Route: 042
     Dates: start: 20130404, end: 20130724
  2. TAXOL [Suspect]
     Indication: NON-SMALL CELL LUNG CANCER
     Dosage: 175 MG/2
     Route: 042
     Dates: start: 20130404
  3. CARBOPLATIN [Suspect]
     Indication: NON-SMALL CELL LUNG CANCER
     Dosage: AUC 5
     Route: 042
     Dates: start: 20130404
  4. ENALAPRIL [Concomitant]
  5. BISOPROLOL [Concomitant]
  6. PRADAXA [Concomitant]

REACTIONS (5)
  - Sepsis [Fatal]
  - Chest pain [Recovering/Resolving]
  - Pneumothorax [Recovered/Resolved]
  - Dyspnoea [Not Recovered/Not Resolved]
  - Troponin increased [Unknown]
